FAERS Safety Report 8314183-4 (Version None)
Quarter: 2012Q2

REPORT INFORMATION
  Report Type: 
  Country: None (occurrence: None)
  Receive Date: 20120426
  Receipt Date: 20120417
  Transmission Date: 20120825
  Serious: Yes (Hospitalization)
  Sender: FDA-Public Use
  Company Number: US-ASTRAZENECA-2010SE37043

PATIENT
  Age: 91 Year
  Sex: Female

DRUGS (9)
  1. ALBUTEROL [Concomitant]
  2. OMEPRAZOLE [Concomitant]
  3. SPIRIVA INHALANT [Concomitant]
  4. LISINOPRIL [Concomitant]
  5. BROVANA [Concomitant]
  6. PULMICORT FLEXHALER [Suspect]
     Dosage: 0.5 MG IN 2 ML DAILY
     Route: 055
  7. PULMICORT FLEXHALER [Suspect]
     Route: 055
  8. BUDESONIDE [Suspect]
     Dosage: GENERIC
     Route: 065
  9. AMLODIPINE [Concomitant]

REACTIONS (5)
  - LUNG INFECTION [None]
  - INTENTIONAL DRUG MISUSE [None]
  - HYPONATRAEMIA [None]
  - PNEUMONIA [None]
  - OFF LABEL USE [None]
